FAERS Safety Report 6948786-6 (Version None)
Quarter: 2010Q3

REPORT INFORMATION
  Report Type: 
  Country: None (occurrence: None)
  Receive Date: 20100828
  Receipt Date: 20091203
  Transmission Date: 20110219
  Serious: No
  Sender: FDA-Public Use
  Company Number: US-ABBOTT-09P-163-0612156-00

PATIENT
  Sex: Male
  Weight: 81.72 kg

DRUGS (8)
  1. NIASPAN [Suspect]
     Indication: HIGH DENSITY LIPOPROTEIN DECREASED
     Route: 048
     Dates: start: 20091127, end: 20091202
  2. NIASPAN [Suspect]
     Route: 048
     Dates: start: 20091202
  3. ASPIRIN [Concomitant]
     Indication: CARDIOVASCULAR EVENT PROPHYLAXIS
     Route: 048
  4. ASPIRIN [Concomitant]
     Indication: FLUSHING
  5. ASPIRIN [Concomitant]
     Indication: PROPHYLAXIS
  6. PRILOSEC [Concomitant]
     Indication: GASTROOESOPHAGEAL REFLUX DISEASE
     Route: 048
  7. LOPRESSOR [Concomitant]
     Indication: HYPERTENSION
     Route: 048
  8. ZETIA [Concomitant]
     Indication: ARTERIOSCLEROSIS
     Route: 048

REACTIONS (2)
  - FLUSHING [None]
  - PALPITATIONS [None]
